FAERS Safety Report 13538097 (Version 5)
Quarter: 2020Q3

REPORT INFORMATION
  Report Type: Report from Study
  Country: None (occurrence: US)
  Receive Date: 20170512
  Receipt Date: 20200814
  Transmission Date: 20201102
  Serious: Yes (Hospitalization, Other)
  Sender: FDA-Public Use
  Company Number: US-ABBVIE-17K-163-1913208-00

PATIENT
  Age: 68 Year
  Sex: Female
  Weight: 79 kg

DRUGS (29)
  1. DICYCLOMINE [Concomitant]
     Active Substance: DICYCLOMINE HYDROCHLORIDE
     Indication: NAUSEA
  2. HUMIRA [Suspect]
     Active Substance: ADALIMUMAB
     Dosage: CITRATE FREE
     Route: 058
  3. VITAMIN B12 [Concomitant]
     Active Substance: CYANOCOBALAMIN
     Indication: VITAMIN B12 DEFICIENCY
  4. FENOFIBRATE. [Concomitant]
     Active Substance: FENOFIBRATE
     Indication: BLOOD CHOLESTEROL INCREASED
  5. CANASA [Concomitant]
     Active Substance: MESALAMINE
     Indication: CROHN^S DISEASE
  6. ZYRTEC [Concomitant]
     Active Substance: CETIRIZINE HYDROCHLORIDE
     Indication: HYPERSENSITIVITY
  7. HUMIRA [Suspect]
     Active Substance: ADALIMUMAB
     Indication: CROHN^S DISEASE
     Route: 058
     Dates: start: 20140214, end: 201602
  8. HYDROCHLOROTHIAZIDE W/LISINOPRIL [Concomitant]
     Active Substance: HYDROCHLOROTHIAZIDE\LISINOPRIL
     Indication: HYPERTENSION
  9. CHOLESTYRAMINE. [Concomitant]
     Active Substance: CHOLESTYRAMINE
     Indication: ABNORMAL FAECES
  10. DILTIAZEM. [Concomitant]
     Active Substance: DILTIAZEM
     Indication: BLOOD PRESSURE MEASUREMENT
  11. PRADAXA [Suspect]
     Active Substance: DABIGATRAN ETEXILATE MESYLATE
     Indication: ANTICOAGULANT THERAPY
     Route: 048
     Dates: start: 201805, end: 2018
  12. PRADAXA [Suspect]
     Active Substance: DABIGATRAN ETEXILATE MESYLATE
     Route: 048
     Dates: start: 201806
  13. ASPIRIN. [Concomitant]
     Active Substance: ASPIRIN
     Indication: ANTICOAGULANT THERAPY
  14. NYSTATIN. [Concomitant]
     Active Substance: NYSTATIN
     Indication: RASH
  15. BIOTIN [Concomitant]
     Active Substance: BIOTIN
     Indication: ALOPECIA
  16. LORATADINE. [Concomitant]
     Active Substance: LORATADINE
     Indication: HYPERSENSITIVITY
  17. ZITHROMAX [Concomitant]
     Active Substance: AZITHROMYCIN DIHYDRATE
     Indication: INFECTION PROPHYLAXIS
     Route: 048
     Dates: start: 20180719
  18. VITAMIN D3 [Concomitant]
     Active Substance: CHOLECALCIFEROL
     Indication: VITAMIN D DEFICIENCY
  19. TRIAMCINOLONE [Concomitant]
     Active Substance: TRIAMCINOLONE
     Indication: PRODUCT USED FOR UNKNOWN INDICATION
  20. IRON [Concomitant]
     Active Substance: IRON
     Indication: ANAEMIA
  21. VITAMIN C [Concomitant]
     Active Substance: ASCORBIC ACID
     Indication: VITAMIN C DEFICIENCY
  22. BIOTIN [Concomitant]
     Active Substance: BIOTIN
     Indication: ONYCHOCLASIS
  23. FENOFIBRATE. [Concomitant]
     Active Substance: FENOFIBRATE
     Indication: HYPERLIPIDAEMIA
  24. OMEPRAZOLE. [Concomitant]
     Active Substance: OMEPRAZOLE
     Indication: GASTROOESOPHAGEAL REFLUX DISEASE
  25. HUMIRA [Suspect]
     Active Substance: ADALIMUMAB
     Route: 058
     Dates: start: 201603
  26. PREDNISONE. [Suspect]
     Active Substance: PREDNISONE
     Indication: PRODUCT USED FOR UNKNOWN INDICATION
     Route: 065
  27. COLESTID [Concomitant]
     Active Substance: COLESTIPOL HYDROCHLORIDE
     Indication: FREQUENT BOWEL MOVEMENTS
  28. IMODIUM [Concomitant]
     Active Substance: LOPERAMIDE HYDROCHLORIDE
     Indication: PRODUCT USED FOR UNKNOWN INDICATION
  29. TYLENOL [Concomitant]
     Active Substance: ACETAMINOPHEN
     Indication: ARTHRITIS

REACTIONS (21)
  - Device breakage [Recovering/Resolving]
  - Energy increased [Not Recovered/Not Resolved]
  - Seroma [Not Recovered/Not Resolved]
  - Wound [Not Recovered/Not Resolved]
  - Wound secretion [Not Recovered/Not Resolved]
  - Gastrointestinal haemorrhage [Unknown]
  - Impaired healing [Not Recovered/Not Resolved]
  - Nervousness [Not Recovered/Not Resolved]
  - Hernia [Recovered/Resolved]
  - Haematocrit decreased [Recovering/Resolving]
  - Atrial fibrillation [Not Recovered/Not Resolved]
  - Clostridium difficile infection [Not Recovered/Not Resolved]
  - Abdominal distension [Recovering/Resolving]
  - Atrial fibrillation [Recovered/Resolved]
  - Sleep disorder [Unknown]
  - Post procedural complication [Recovered/Resolved]
  - Anaemia [Recovering/Resolving]
  - Rectal haemorrhage [Recovering/Resolving]
  - Crohn^s disease [Not Recovered/Not Resolved]
  - Wrong technique in product usage process [Unknown]
  - Procedural pain [Recovering/Resolving]

NARRATIVE: CASE EVENT DATE: 2016
